FAERS Safety Report 12630436 (Version 1)
Quarter: 2016Q3

REPORT INFORMATION
  Report Type: Spontaneous
  Country: US (occurrence: US)
  Receive Date: 20160808
  Receipt Date: 20160808
  Transmission Date: 20161109
  Serious: No
  Sender: FDA-Public Use
  Company Number: US-SHIRE-US201609852

PATIENT
  Age: 5 Year
  Sex: Female

DRUGS (1)
  1. PENTASA [Suspect]
     Active Substance: MESALAMINE
     Indication: CROHN^S DISEASE
     Dosage: 500 MG, 3X/DAY:TID
     Route: 048

REACTIONS (3)
  - Drug administered to patient of inappropriate age [Unknown]
  - No adverse event [Unknown]
  - Product use issue [Unknown]
